FAERS Safety Report 6554456-9 (Version None)
Quarter: 2010Q1

REPORT INFORMATION
  Report Type: 
  Country: None (occurrence: None)
  Receive Date: 20100125
  Receipt Date: 20100125
  Transmission Date: 20100710
  Serious: Yes (Hospitalization, Disabling)
  Sender: FDA-Public Use
  Company Number: None

PATIENT
  Age: 40 Year
  Sex: Male
  Weight: 77.1115 kg

DRUGS (1)
  1. DECADRON [Suspect]

REACTIONS (4)
  - DISEASE COMPLICATION [None]
  - MUSCLE STRAIN [None]
  - OSTEONECROSIS [None]
  - PAIN [None]
